FAERS Safety Report 8227536 (Version 6)
Quarter: 2016Q1

REPORT INFORMATION
  Report Type: Spontaneous
  Country: US (occurrence: US)
  Receive Date: 20111103
  Receipt Date: 20160119
  Transmission Date: 20160526
  Serious: Yes (Other)
  Sender: FDA-Public Use
  Company Number: US-AMGEN-USASP2011038849

PATIENT
  Age: 77 Year
  Sex: Female

DRUGS (11)
  1. ENBREL [Suspect]
     Active Substance: ETANERCEPT
     Indication: ANKYLOSING SPONDYLITIS
     Dosage: 50 MG, ONCE WEEKLY
     Route: 058
     Dates: start: 20020101
  2. PLAQUENIL [Suspect]
     Active Substance: HYDROXYCHLOROQUINE SULFATE
     Indication: ANKYLOSING SPONDYLITIS
     Dosage: UNK
     Route: 065
  3. CALCIUM [Concomitant]
     Active Substance: CALCIUM
     Dosage: UNK
  4. CORTISONE [Concomitant]
     Active Substance: CORTISONE\HYDROCORTISONE
     Dosage: UNK
  5. PROLIA [Suspect]
     Active Substance: DENOSUMAB
     Indication: PRODUCT USED FOR UNKNOWN INDICATION
     Dosage: UNK
     Route: 065
  6. METHOTREXATE [Suspect]
     Active Substance: METHOTREXATE
     Indication: ANKYLOSING SPONDYLITIS
     Dosage: UNK
     Route: 065
  7. ENBREL [Suspect]
     Active Substance: ETANERCEPT
     Indication: RHEUMATOID ARTHRITIS
  8. PREDNISONE. [Concomitant]
     Active Substance: PREDNISONE
     Dosage: UNK
  9. FOSAMAX [Suspect]
     Active Substance: ALENDRONATE SODIUM
     Indication: PRODUCT USED FOR UNKNOWN INDICATION
     Dosage: UNK
     Route: 065
  10. MEDROL [Concomitant]
     Active Substance: METHYLPREDNISOLONE
     Dosage: UNK
  11. MAGNESIUM [Concomitant]
     Active Substance: MAGNESIUM
     Dosage: UNK

REACTIONS (34)
  - Bladder disorder [Unknown]
  - Tooth repair [Unknown]
  - Injection site warmth [Unknown]
  - Sleep apnoea syndrome [Unknown]
  - Micturition urgency [Unknown]
  - Sinus disorder [Unknown]
  - Spider vein [Not Recovered/Not Resolved]
  - Oesophageal disorder [Unknown]
  - Arthritis [Unknown]
  - Osteoporosis [Unknown]
  - Fall [Unknown]
  - Joint swelling [Unknown]
  - Gait disturbance [Unknown]
  - Knee deformity [Unknown]
  - Injection site mass [Unknown]
  - Injection site reaction [Unknown]
  - Joint warmth [Unknown]
  - Musculoskeletal discomfort [Unknown]
  - Pain [Unknown]
  - Injection site erythema [Unknown]
  - Injection site pruritus [Unknown]
  - Cough [Unknown]
  - Arthropathy [Unknown]
  - Bone density abnormal [Unknown]
  - Malaise [Unknown]
  - Sinusitis [Unknown]
  - Injection site pain [Unknown]
  - Arthralgia [Not Recovered/Not Resolved]
  - Joint fluid drainage [Unknown]
  - Back pain [Not Recovered/Not Resolved]
  - Blood urine present [Unknown]
  - Joint range of motion decreased [Unknown]
  - Drug effect incomplete [Unknown]
  - Vascular rupture [Unknown]

NARRATIVE: CASE EVENT DATE: 201408
